FAERS Safety Report 12410036 (Version 2)
Quarter: 2016Q2

REPORT INFORMATION
  Report Type: Spontaneous
  Country: JP (occurrence: JP)
  Receive Date: 20160527
  Receipt Date: 20160527
  Transmission Date: 20160815
  Serious: Yes (Hospitalization, Other)
  Sender: FDA-Public Use
  Company Number: JP-ROCHE-1733575

PATIENT
  Age: 73 Year
  Sex: Male
  Weight: 57 kg

DRUGS (19)
  1. DEXART [Concomitant]
     Active Substance: DEXAMETHASONE SODIUM PHOSPHATE
     Indication: NON-SMALL CELL LUNG CANCER
     Route: 041
     Dates: start: 20160202
  2. TAKEPRON [Concomitant]
     Active Substance: LANSOPRAZOLE
     Route: 048
  3. DIART [Concomitant]
     Active Substance: AZOSEMIDE
     Route: 048
  4. CARBOPLATIN. [Suspect]
     Active Substance: CARBOPLATIN
     Indication: NON-SMALL CELL LUNG CANCER
     Dosage: 1C
     Route: 041
     Dates: start: 20160202, end: 20160202
  5. PACLITAXEL. [Suspect]
     Active Substance: PACLITAXEL
     Indication: NON-SMALL CELL LUNG CANCER
     Dosage: 1C
     Route: 041
     Dates: start: 20160202, end: 20160202
  6. RANITIDINE. [Concomitant]
     Active Substance: RANITIDINE
     Indication: NON-SMALL CELL LUNG CANCER
     Route: 041
     Dates: start: 20160202
  7. AVASTIN [Suspect]
     Active Substance: BEVACIZUMAB
     Route: 041
     Dates: start: 20160509
  8. BROTIZOLAM [Concomitant]
     Active Substance: BROTIZOLAM
     Route: 048
  9. AVASTIN [Suspect]
     Active Substance: BEVACIZUMAB
     Indication: NON-SMALL CELL LUNG CANCER
     Dosage: 2C
     Route: 041
     Dates: start: 20160302, end: 20160302
  10. PACLITAXEL. [Suspect]
     Active Substance: PACLITAXEL
     Indication: NON-SMALL CELL LUNG CANCER
     Dosage: 2C
     Route: 041
     Dates: start: 20160302, end: 20160302
  11. GRANISETRON [Concomitant]
     Active Substance: GRANISETRON
     Indication: NON-SMALL CELL LUNG CANCER
     Route: 041
     Dates: start: 20160202
  12. VENA [Concomitant]
     Active Substance: DIPHENHYDRAMINE HYDROCHLORIDE
     Indication: NON-SMALL CELL LUNG CANCER
     Route: 048
     Dates: start: 20160202
  13. AVASTIN [Suspect]
     Active Substance: BEVACIZUMAB
     Indication: NON-SMALL CELL LUNG CANCER
     Dosage: 3C
     Route: 041
     Dates: start: 20160405, end: 20160405
  14. AVASTIN [Suspect]
     Active Substance: BEVACIZUMAB
     Indication: NON-SMALL CELL LUNG CANCER
     Dosage: 1C
     Route: 041
     Dates: start: 20160202, end: 20160202
  15. PACLITAXEL. [Suspect]
     Active Substance: PACLITAXEL
     Indication: NON-SMALL CELL LUNG CANCER
     Dosage: 3C
     Route: 041
     Dates: start: 20160405, end: 20160405
  16. NAIXAN [Concomitant]
     Active Substance: NAPROXEN SODIUM
     Route: 048
  17. GLIMEPIRIDE. [Concomitant]
     Active Substance: GLIMEPIRIDE
     Indication: TYPE 2 DIABETES MELLITUS
     Route: 048
  18. CARBOPLATIN. [Suspect]
     Active Substance: CARBOPLATIN
     Indication: NON-SMALL CELL LUNG CANCER
     Dosage: 2C
     Route: 041
     Dates: start: 20160302, end: 20160302
  19. CARBOPLATIN. [Suspect]
     Active Substance: CARBOPLATIN
     Indication: NON-SMALL CELL LUNG CANCER
     Dosage: 3C
     Route: 041
     Dates: start: 20160405, end: 20160405

REACTIONS (2)
  - Radiation pneumonitis [Not Recovered/Not Resolved]
  - Febrile neutropenia [Recovered/Resolved]

NARRATIVE: CASE EVENT DATE: 20160211
